FAERS Safety Report 17044933 (Version 2)
Quarter: 2019Q4

REPORT INFORMATION
  Report Type: Spontaneous
  Country: DE (occurrence: DE)
  Receive Date: 20191118
  Receipt Date: 20191218
  Transmission Date: 20200122
  Serious: Yes (Other)
  Sender: FDA-Public Use
  Company Number: NVSC2019DE036377

PATIENT
  Sex: Male
  Weight: 90 kg

DRUGS (1)
  1. EXJADE [Suspect]
     Active Substance: DEFERASIROX
     Indication: HAEMOCHROMATOSIS
     Dosage: UNK
     Route: 048

REACTIONS (2)
  - Fracture [Recovering/Resolving]
  - Osteoporosis [Not Recovered/Not Resolved]
